FAERS Safety Report 10243308 (Version 1)
Quarter: 2014Q2

REPORT INFORMATION
  Report Type: Spontaneous
  Country: US (occurrence: None)
  Receive Date: 20140616
  Receipt Date: 20140616
  Transmission Date: 20141212
  Serious: Yes (Life-Threatening, Other)
  Sender: FDA-Public Use
  Company Number: 001748909A

PATIENT
  Age: 58 Year
  Sex: Female

DRUGS (6)
  1. MEANINGFUL BEAUTY ANTIOXIDANT DAY CREME SPF 20 [Suspect]
     Dosage: ONCE DAILY DERMAL
     Dates: start: 20140318, end: 20140319
  2. MEANINGFUL BEAUTY SKIN BRIGHTENING DECOLLETE AND NECK TREATMENT WITH SPF 15 [Suspect]
     Dosage: ONCE DAILY DERMAL
     Dates: start: 20140318, end: 20140319
  3. THYROID [Concomitant]
  4. EPIPEN [Concomitant]
  5. VITAMINS [Concomitant]
  6. BENADRYL [Concomitant]

REACTIONS (3)
  - Lip swelling [None]
  - Eye swelling [None]
  - Erythema [None]
